FAERS Safety Report 4354813-5 (Version None)
Quarter: 2004Q2

REPORT INFORMATION
  Report Type: 
  Country: None (occurrence: None)
  Receive Date: 20040507
  Receipt Date: 20040325
  Transmission Date: 20050107
  Serious: Yes (Congenital Anomaly)
  Sender: FDA-Public Use
  Company Number: US-ROCHE-363035

PATIENT
  Age: 36 Year
  Sex: Female

DRUGS (4)
  1. INVIRASE [Suspect]
     Indication: SYSTEMIC ANTIVIRAL TREATMENT
     Route: 048
  2. ZIAGEN [Suspect]
     Indication: SYSTEMIC ANTIVIRAL TREATMENT
     Route: 048
  3. ZERIT [Suspect]
     Indication: SYSTEMIC ANTIVIRAL TREATMENT
     Route: 048
  4. NORVIR [Suspect]
     Indication: SYSTEMIC ANTIVIRAL TREATMENT
     Route: 048

REACTIONS (3)
  - DRUG EXPOSURE DURING PREGNANCY [None]
  - PREGNANCY [None]
  - TRISOMY 21 [None]
